FAERS Safety Report 10195593 (Version 3)
Quarter: 2016Q1

REPORT INFORMATION
  Report Type: Report from Study
  Country: CA (occurrence: CA)
  Receive Date: 20140527
  Receipt Date: 20160126
  Transmission Date: 20160525
  Serious: Yes (Other)
  Sender: FDA-Public Use
  Company Number: CA-ROCHE-1198516

PATIENT
  Age: 57 Year
  Sex: Female
  Weight: 72.6 kg

DRUGS (13)
  1. ACTEMRA [Suspect]
     Active Substance: TOCILIZUMAB
     Indication: RHEUMATOID ARTHRITIS
     Route: 042
     Dates: start: 20130227, end: 20130227
  2. HYDROCHLOROTHIAZIDE. [Concomitant]
     Active Substance: HYDROCHLOROTHIAZIDE
  3. BENADRYL [Suspect]
     Active Substance: DIPHENHYDRAMINE HYDROCHLORIDE
     Route: 048
     Dates: start: 20130807
  4. BENADRYL [Suspect]
     Active Substance: DIPHENHYDRAMINE HYDROCHLORIDE
     Indication: PREMEDICATION
     Route: 042
     Dates: start: 20130424
  5. AMLODIPINE [Concomitant]
     Active Substance: AMLODIPINE BESYLATE
  6. PREDNISONE. [Concomitant]
     Active Substance: PREDNISONE
  7. ORENCIA [Suspect]
     Active Substance: ABATACEPT
     Indication: PRODUCT USED FOR UNKNOWN INDICATION
     Route: 065
  8. ALENDRONATE [Concomitant]
     Active Substance: ALENDRONATE SODIUM
  9. RITUXAN [Suspect]
     Active Substance: RITUXIMAB
     Indication: RHEUMATOID ARTHRITIS
     Route: 042
     Dates: start: 20130710
  10. RITUXAN [Suspect]
     Active Substance: RITUXIMAB
     Route: 042
     Dates: start: 20130807
  11. FOLIC ACID. [Concomitant]
     Active Substance: FOLIC ACID
  12. METHOTREXATE [Concomitant]
     Active Substance: METHOTREXATE
  13. FOSAMAX [Concomitant]
     Active Substance: ALENDRONATE SODIUM

REACTIONS (11)
  - Dizziness [Recovering/Resolving]
  - Inflammation [Unknown]
  - Tremor [Not Recovered/Not Resolved]
  - Oropharyngeal pain [Unknown]
  - Acne [Not Recovered/Not Resolved]
  - Infusion related reaction [Recovered/Resolved]
  - Infusion related reaction [Recovered/Resolved]
  - Alopecia [Unknown]
  - Fatigue [Not Recovered/Not Resolved]
  - Diarrhoea [Unknown]
  - Nervousness [Unknown]

NARRATIVE: CASE EVENT DATE: 20130227
